FAERS Safety Report 23426731 (Version 7)
Quarter: 2024Q4

REPORT INFORMATION
  Report Type: Report from Study
  Country: IL (occurrence: IL)
  Receive Date: 20240122
  Receipt Date: 20241121
  Transmission Date: 20250115
  Serious: Yes (Death, Hospitalization, Other)
  Sender: TAKEDA
  Company Number: IL-TAKEDA-2024TUS002979

PATIENT
  Sex: Male

DRUGS (2)
  1. HUMAN IMMUNOGLOBULIN G\HYALURONIDASE RECOMBINANT HUMAN [Suspect]
     Active Substance: HUMAN IMMUNOGLOBULIN G\HYALURONIDASE (HUMAN RECOMBINANT)
     Indication: Secondary immunodeficiency
     Dosage: 30 GRAM, Q4WEEKS
     Dates: start: 20230830
  2. HUMAN IMMUNOGLOBULIN G\HYALURONIDASE RECOMBINANT HUMAN [Suspect]
     Active Substance: HUMAN IMMUNOGLOBULIN G\HYALURONIDASE (HUMAN RECOMBINANT)
     Dosage: 40 GRAM, Q4WEEKS

REACTIONS (10)
  - Oncologic complication [Fatal]
  - Plasma cell myeloma [Unknown]
  - Pleural effusion [Unknown]
  - Pneumonia [Unknown]
  - Viral infection [Unknown]
  - Treatment noncompliance [Unknown]
  - Antibody test abnormal [Unknown]
  - Decreased appetite [Unknown]
  - Asthenia [Unknown]
  - Dizziness [Unknown]
